FAERS Safety Report 6554611-8 (Version None)
Quarter: 2010Q1

REPORT INFORMATION
  Report Type: 
  Country: None (occurrence: None)
  Receive Date: 20100125
  Receipt Date: 20100113
  Transmission Date: 20100710
  Serious: Yes (Hospitalization)
  Sender: FDA-Public Use
  Company Number: 2009AC000288

PATIENT
  Age: 73 Year
  Sex: Female

DRUGS (36)
  1. DIGOXIN [Suspect]
     Dosage: .125 MG; QD; PO
     Route: 048
     Dates: start: 20050101
  2. LISINOPRIL [Concomitant]
  3. ASCRIPTIN [Concomitant]
  4. VITAMIN B-12 [Concomitant]
  5. LIPITOR [Concomitant]
  6. POTASSIUM CHLORIDE [Concomitant]
  7. ZETIA [Concomitant]
  8. OCEAN NASAL SPRAY [Concomitant]
  9. LEVAQUIN [Concomitant]
  10. METHYLPREDNISOLONE [Concomitant]
  11. PROMETHAZINE [Concomitant]
  12. FLUOROURACIL [Concomitant]
  13. TRIAMCINOLONE [Concomitant]
  14. CEPHALEXIN [Concomitant]
  15. ENTEX SOLUTION [Concomitant]
  16. DOXYCYLINE [Concomitant]
  17. SELDANE-D [Concomitant]
  18. VANCENASE [Concomitant]
  19. TRIMOX [Concomitant]
  20. VANCERIL [Concomitant]
  21. ZITHROMAX [Concomitant]
  22. DELTASONE [Concomitant]
  23. CLARITIN [Concomitant]
  24. LESCOL [Concomitant]
  25. QUESTRAN [Concomitant]
  26. DICYCLOMINE [Concomitant]
  27. ZOCOR [Concomitant]
  28. DEPHENOXYLATE/ATROPINE [Concomitant]
  29. PRAVACHOL [Concomitant]
  30. TAMIFLU [Concomitant]
  31. AVELOX [Concomitant]
  32. AMOXICILLIN [Concomitant]
  33. TEQUIN [Concomitant]
  34. CIPRO [Concomitant]
  35. ZETIA [Concomitant]
  36. LIPITOR [Concomitant]

REACTIONS (13)
  - ABDOMINAL PAIN UPPER [None]
  - BLOOD ALKALINE PHOSPHATASE INCREASED [None]
  - BLOOD PRESSURE INCREASED [None]
  - CEREBROVASCULAR ACCIDENT [None]
  - DIZZINESS [None]
  - ECONOMIC PROBLEM [None]
  - HYPERLIPIDAEMIA [None]
  - MULTIPLE INJURIES [None]
  - NAUSEA [None]
  - PANCREATIC DISORDER [None]
  - PRESYNCOPE [None]
  - SUPRAVENTRICULAR TACHYCARDIA [None]
  - SURGERY [None]
